FAERS Safety Report 18416736 (Version 1)
Quarter: 2020Q4

REPORT INFORMATION
  Report Type: Spontaneous
  Country: US (occurrence: US)
  Receive Date: 20201022
  Receipt Date: 20201022
  Transmission Date: 20210114
  Serious: No
  Sender: FDA-Public Use
  Company Number: US-PINE PHARMACEUTICALS, LLC-2093033

PATIENT
  Age: 75 Year
  Sex: Female

DRUGS (1)
  1. MOXIFLOXACIN 150 MCG/0.1 ML IN BSS SOLUTION FOR INTRAOCULAR INJECTION [Suspect]
     Active Substance: MOXIFLOXACIN
     Indication: POSTERIOR CAPSULE OPACIFICATION
     Route: 031
     Dates: start: 20200921

REACTIONS (1)
  - Toxic anterior segment syndrome [Recovering/Resolving]

NARRATIVE: CASE EVENT DATE: 20200928
